FAERS Safety Report 20176053 (Version 2)
Quarter: 2022Q1

REPORT INFORMATION
  Report Type: Spontaneous
  Country: US (occurrence: US)
  Receive Date: 20211213
  Receipt Date: 20220202
  Transmission Date: 20220424
  Serious: Yes (Other)
  Sender: FDA-Public Use
  Company Number: US-PFIZER INC-202101698065

PATIENT
  Age: 71 Year
  Sex: Female
  Weight: 86.18 kg

DRUGS (2)
  1. HALCION [Suspect]
     Active Substance: TRIAZOLAM
     Indication: Anxiety
     Dosage: 0.25 MG, 2X/DAY
     Route: 048
  2. HALCION [Suspect]
     Active Substance: TRIAZOLAM
     Indication: Insomnia

REACTIONS (2)
  - Product use issue [Unknown]
  - Drug dependence [Unknown]
